FAERS Safety Report 7572287-8 (Version None)
Quarter: 2011Q2

REPORT INFORMATION
  Report Type: 
  Country: None (occurrence: None)
  Receive Date: 20110624
  Receipt Date: 20110614
  Transmission Date: 20111010
  Serious: Yes (Other)
  Sender: FDA-Public Use
  Company Number: PHHY2011US52514

PATIENT
  Sex: Female

DRUGS (1)
  1. GENTEAL [Suspect]

REACTIONS (3)
  - DYSPHAGIA [None]
  - VISUAL ACUITY REDUCED [None]
  - MACULAR DEGENERATION [None]
